FAERS Safety Report 7579109-X (Version None)
Quarter: 2011Q2

REPORT INFORMATION
  Report Type: 
  Country: None (occurrence: None)
  Receive Date: 20110628
  Receipt Date: 20110620
  Transmission Date: 20111010
  Serious: Yes (Other)
  Sender: FDA-Public Use
  Company Number: DE-UCBSA-025693

PATIENT
  Sex: Female
  Weight: 83 kg

DRUGS (6)
  1. NACOM RETARD [Concomitant]
     Indication: PARKINSON'S DISEASE
     Dosage: DAILY DOSE: 4; FOR } 6 MONTHS
     Route: 048
  2. TASMAR [Concomitant]
     Indication: PARKINSON'S DISEASE
     Dosage: DAILY DOSE: 3; FOR } 6 MONTHS
     Route: 048
  3. PM MERZ [Concomitant]
     Indication: PARKINSON'S DISEASE
     Dosage: DAILY DOSE: 3. FOR } 6 MONTHS
     Route: 048
  4. AZILECT [Concomitant]
     Indication: PARKINSON'S DISEASE
     Dosage: DAILY DOSE: 1. FOR } 6 MONTHS
     Route: 048
  5. NEUPRO [Suspect]
     Indication: PARKINSON'S DISEASE
     Route: 062
     Dates: start: 20090101
  6. NEUPRO [Suspect]
     Route: 062
     Dates: start: 20101001

REACTIONS (2)
  - CYST [None]
  - DRUG EFFECT DECREASED [None]
